FAERS Safety Report 5834889-6 (Version None)
Quarter: 2008Q3

REPORT INFORMATION
  Report Type: 
  Country: None (occurrence: None)
  Receive Date: 20080806
  Receipt Date: 20080804
  Transmission Date: 20090109
  Serious: Yes (Death, Hospitalization)
  Sender: FDA-Public Use
  Company Number: FR-BRISTOL-MYERS SQUIBB COMPANY-14234983

PATIENT
  Age: 38 Year
  Sex: Female
  Weight: 75 kg

DRUGS (3)
  1. ABILIFY [Suspect]
     Indication: SCHIZOPHRENIA
     Dosage: 15 MG DAILY WAS INITIATED FOUR OR FIVE MONTHS AGO
     Route: 048
     Dates: start: 20080201
  2. SOLIAN [Suspect]
     Indication: SCHIZOPHRENIA
     Dosage: STOPPED AFTER AN OVERLAP PERIOD OF 3 WEEKS AND RESTARTED.
     Route: 048
     Dates: start: 20070101
  3. DEPAKOTE [Concomitant]
     Dates: start: 20070101

REACTIONS (2)
  - ABNORMAL BEHAVIOUR [None]
  - CARDIAC ARREST [None]
